FAERS Safety Report 7110215-X (Version None)
Quarter: 2010Q4

REPORT INFORMATION
  Report Type: 
  Country: None (occurrence: None)
  Receive Date: 20101118
  Receipt Date: 20101109
  Transmission Date: 20110411
  Serious: Yes (Hospitalization)
  Sender: FDA-Public Use
  Company Number: FI-BAYER-201045830GPV

PATIENT
  Age: 80 Year
  Sex: Female

DRUGS (5)
  1. SORAFENIB [Suspect]
     Indication: HEPATIC NEOPLASM MALIGNANT
     Dates: start: 20100401
  2. SORAFENIB [Suspect]
     Dosage: DOSE WAS INCREASED
     Dates: start: 20100501
  3. SPIRESIS [Concomitant]
     Indication: ASCITES
     Dosage: 100 MG TABLET
     Dates: start: 20100928
  4. HYDREX SEMI [Concomitant]
     Indication: ASCITES
     Dates: start: 20101015
  5. OXYNORM [Concomitant]
     Indication: PAIN
     Dates: start: 20101021

REACTIONS (4)
  - ABNORMAL SENSATION IN EYE [None]
  - HYPOACUSIS [None]
  - VISUAL ACUITY REDUCED [None]
  - VISUAL IMPAIRMENT [None]
